FAERS Safety Report 12291056 (Version 1)
Quarter: 2016Q2

REPORT INFORMATION
  Report Type: Spontaneous
  Country: AU (occurrence: AU)
  Receive Date: 20160421
  Receipt Date: 20160421
  Transmission Date: 20160815
  Serious: Yes (Death)
  Sender: FDA-Public Use
  Company Number: PHHY2016AU053052

PATIENT
  Age: 67 Year
  Sex: Male

DRUGS (1)
  1. DABRAFENIB [Suspect]
     Active Substance: DABRAFENIB
     Indication: THYROID CANCER
     Dosage: 150 MG, QD
     Route: 065

REACTIONS (4)
  - Pain [Fatal]
  - Malignant neoplasm progression [Fatal]
  - Off label use [Unknown]
  - Thyroid cancer [Fatal]
